FAERS Safety Report 22907607 (Version 3)
Quarter: 2023Q4

REPORT INFORMATION
  Report Type: Spontaneous
  Country: DE (occurrence: DE)
  Receive Date: 20230905
  Receipt Date: 20231010
  Transmission Date: 20240110
  Serious: Yes (Hospitalization, Other)
  Sender: FDA-Public Use
  Company Number: DE-BAXTER-2023BAX029148

PATIENT
  Age: 67 Year
  Sex: Male

DRUGS (24)
  1. RITUXIMAB [Suspect]
     Active Substance: RITUXIMAB
     Indication: Diffuse large B-cell lymphoma
     Dosage: UNK, INITIAL THERAPY 8 X R-CHOP, THERAPY AFTER FIRST RECURRENCE: 1X R-CHOP PART OF R-DHAP REGIMEN
  2. RITUXIMAB [Suspect]
     Active Substance: RITUXIMAB
     Indication: Small intestine carcinoma
  3. RITUXIMAB [Suspect]
     Active Substance: RITUXIMAB
     Indication: Diffuse large B-cell lymphoma stage II
  4. DOXORUBICIN [Suspect]
     Active Substance: DOXORUBICIN
     Indication: Diffuse large B-cell lymphoma recurrent
     Dosage: UNK, INITIAL THERAPY 8 X R-CHOP, THERAPY AFTER FIRST RECURRENCE: 1X R-CHOP PART OF R-DHAP REGIMEN
  5. DOXORUBICIN [Suspect]
     Active Substance: DOXORUBICIN
     Indication: Small intestine carcinoma
  6. DOXORUBICIN [Suspect]
     Active Substance: DOXORUBICIN
     Indication: Diffuse large B-cell lymphoma stage II
  7. CYTARABINE [Suspect]
     Active Substance: CYTARABINE
     Indication: Small intestine carcinoma
     Dosage: UNK, THERAPY AFTER FIRST RECURRENCE: AS A PART OF R-DHAP REGIMEN
  8. CYTARABINE [Suspect]
     Active Substance: CYTARABINE
     Indication: Diffuse large B-cell lymphoma stage II
  9. CYTARABINE [Suspect]
     Active Substance: CYTARABINE
     Indication: Small intestine carcinoma
  10. CYCLOPHOSPHAMIDE [Suspect]
     Active Substance: CYCLOPHOSPHAMIDE
     Indication: Diffuse large B-cell lymphoma stage II
     Dosage: UNK, INITIAL THERAPY 8 X R-CHOP, AFTER FIRST RECURRENCE: 1X R-CHOP
  11. CYCLOPHOSPHAMIDE [Suspect]
     Active Substance: CYCLOPHOSPHAMIDE
     Indication: Small intestine carcinoma
  12. CYCLOPHOSPHAMIDE [Suspect]
     Active Substance: CYCLOPHOSPHAMIDE
     Indication: Diffuse large B-cell lymphoma stage II
  13. PREDNISONE [Suspect]
     Active Substance: PREDNISONE
     Indication: Small intestine carcinoma
     Dosage: UNK, INITIAL THERAPY 8 X R-CHOP, AFTER FIRST RECURRENCE: 1X R-CHOP
  14. PREDNISONE [Suspect]
     Active Substance: PREDNISONE
     Indication: Diffuse large B-cell lymphoma stage II
  15. PREDNISONE [Suspect]
     Active Substance: PREDNISONE
     Indication: Small intestine carcinoma
  16. VINCRISTINE [Suspect]
     Active Substance: VINCRISTINE
     Indication: Diffuse large B-cell lymphoma stage II
     Dosage: UNK, INITIAL THERAPY 8 X R-CHOP, AFTER FIRST RECURRENCE: 1X R-CHOP
  17. VINCRISTINE [Suspect]
     Active Substance: VINCRISTINE
     Indication: Small intestine carcinoma
  18. VINCRISTINE [Suspect]
     Active Substance: VINCRISTINE
     Indication: Diffuse large B-cell lymphoma stage II
  19. DEXAMETHASONE [Suspect]
     Active Substance: DEXAMETHASONE
     Indication: Diffuse large B-cell lymphoma recurrent
     Dosage: UNK, THERAPY AFTER FIRST RECURRENCE: AS A PART OF R-DHAP REGIMEN
  20. DEXAMETHASONE [Suspect]
     Active Substance: DEXAMETHASONE
     Indication: Diffuse large B-cell lymphoma stage II
  21. DEXAMETHASONE [Suspect]
     Active Substance: DEXAMETHASONE
     Indication: Small intestine carcinoma
  22. CISPLATIN [Suspect]
     Active Substance: CISPLATIN
     Indication: Diffuse large B-cell lymphoma recurrent
     Dosage: UNK, THERAPY AFTER FIRST RECURRENCE: AS A PART OF R-DHAP REGIMEN
  23. CISPLATIN [Suspect]
     Active Substance: CISPLATIN
     Indication: Small intestine carcinoma
  24. CISPLATIN [Suspect]
     Active Substance: CISPLATIN
     Indication: Diffuse large B-cell lymphoma stage II

REACTIONS (14)
  - Thrombosis [Unknown]
  - Follicular lymphoma stage III [Unknown]
  - Diffuse large B-cell lymphoma [Unknown]
  - Soft tissue mass [Unknown]
  - Small intestine carcinoma [Unknown]
  - Diffuse large B-cell lymphoma recurrent [Unknown]
  - Neoplasm progression [Unknown]
  - Rash [Unknown]
  - Asthenia [Unknown]
  - Fatigue [Unknown]
  - Depression [Unknown]
  - Gait disturbance [Unknown]
  - Tooth loss [Unknown]
  - Pain [Not Recovered/Not Resolved]
